FAERS Safety Report 6664500-6 (Version None)
Quarter: 2010Q2

REPORT INFORMATION
  Report Type: 
  Country: None (occurrence: None)
  Receive Date: 20100401
  Receipt Date: 20100324
  Transmission Date: 20101027
  Serious: Yes (Hospitalization)
  Sender: FDA-Public Use
  Company Number: US-GILEAD-2010-0027466

PATIENT
  Sex: Female
  Weight: 83.082 kg

DRUGS (13)
  1. LETAIRIS [Suspect]
     Indication: PULMONARY ARTERIAL HYPERTENSION
     Route: 048
     Dates: start: 20090804
  2. FLOLAN [Concomitant]
  3. ADCIRCA [Concomitant]
  4. SPIRONOLACTONE [Concomitant]
  5. FUROSEMIDE [Concomitant]
  6. HYDROXYCHLOROQUONE [Concomitant]
  7. TRAMADOL HCL [Concomitant]
  8. POT CL [Concomitant]
  9. SOD CL [Concomitant]
  10. PRILOSEC [Concomitant]
  11. OXYGEN [Concomitant]
  12. AMBIEN [Concomitant]
  13. TYLENOL PM [Concomitant]

REACTIONS (2)
  - PULMONARY ARTERIAL HYPERTENSION [None]
  - VASODILATION PROCEDURE [None]
